FAERS Safety Report 24008442 (Version 1)
Quarter: 2024Q2

REPORT INFORMATION
  Report Type: Spontaneous
  Country: FR (occurrence: FR)
  Receive Date: 20240625
  Receipt Date: 20240625
  Transmission Date: 20240715
  Serious: Yes (Hospitalization)
  Sender: FDA-Public Use
  Company Number: None

PATIENT
  Age: 55 Year
  Sex: Female

DRUGS (10)
  1. DIAZEPAM [Suspect]
     Active Substance: DIAZEPAM
     Indication: Product used for unknown indication
     Dosage: PARFOIS JUSQUE 300MG/J?SOMETIMES UP TO 300MG/D
     Route: 050
  2. UNSPECIFIED INGREDIENT [Suspect]
     Active Substance: UNSPECIFIED INGREDIENT
     Indication: Product used for unknown indication
     Dosage: 1FOIS/MOIS?1X/MONTH
     Route: 050
  3. NICOTINE\TOBACCO LEAF [Suspect]
     Active Substance: NICOTINE\TOBACCO LEAF
     Indication: Product used for unknown indication
     Dosage: 5 CIG/J EN PLUS DES JOINTS?5 CIG/D PLUS JOINTS
     Route: 050
     Dates: start: 1981
  4. PRAZEPAM [Suspect]
     Active Substance: PRAZEPAM
     Indication: Product used for unknown indication
     Dosage: PARFOIS JUSQUE 50 A 60MG/J?SOMETIMES UP TO 50 TO 60MG/D
     Route: 050
  5. HEROIN [Suspect]
     Active Substance: DIAMORPHINE
     Indication: Product used for unknown indication
     Dosage: ACTUELLEMENT OCCASIONNELLE SOUS FORME DE SPEEDBALL?CURRENTLY OCCASIONALLY IN THE FORM OF SPEEDBALL
     Dates: start: 1981
  6. COCAINE [Suspect]
     Active Substance: COCAINE
     Indication: Product used for unknown indication
     Dosage: ENTRE 3 ET 5G/J?BETWEEN 3 AND 5G/D
     Route: 050
     Dates: start: 2022
  7. COCAINE [Suspect]
     Active Substance: COCAINE
     Dosage: OCCASIONNELLE
     Route: 050
     Dates: start: 1987, end: 2022
  8. COCAINE [Suspect]
     Active Substance: COCAINE
     Dosage: OCCASIONNELLE
     Route: 050
     Dates: start: 1987, end: 2022
  9. CANNABIS SATIVA SUBSP. INDICA TOP [Suspect]
     Active Substance: CANNABIS SATIVA SUBSP. INDICA TOP
     Indication: Product used for unknown indication
     Dosage: 10 JOINTS/JOUR?10 JOINTS/DAY
     Route: 050
     Dates: start: 1981
  10. ALCOHOL [Suspect]
     Active Substance: ALCOHOL
     Indication: Product used for unknown indication
     Dosage: 2 A 3 FOIS PAR SEMAINE, 7U/J?2 TO 3 TIMES A WEEK, 7U/DAY
     Route: 050
     Dates: start: 1981

REACTIONS (2)
  - Withdrawal syndrome [Recovered/Resolved]
  - Drug abuse [Recovering/Resolving]

NARRATIVE: CASE EVENT DATE: 19810101
